FAERS Safety Report 18347431 (Version 1)
Quarter: 2020Q4

REPORT INFORMATION
  Report Type: Spontaneous
  Country: FR (occurrence: FR)
  Receive Date: 20201006
  Receipt Date: 20201006
  Transmission Date: 20210114
  Serious: Yes (Hospitalization)
  Sender: FDA-Public Use
  Company Number: NVSC2020FR263520

PATIENT
  Age: 87 Year
  Sex: Female
  Weight: 87 kg

DRUGS (17)
  1. BICARBONATE SODIUM [Concomitant]
     Active Substance: SODIUM BICARBONATE
     Indication: PRODUCT USED FOR UNKNOWN INDICATION
     Dosage: UNK
     Route: 002
  2. AMOXICILLIN. [Suspect]
     Active Substance: AMOXICILLIN
     Indication: STREPTOCOCCAL SEPSIS
     Dosage: 12 G, QD
     Route: 042
     Dates: start: 20200625, end: 20200629
  3. ECONAZOLE. [Concomitant]
     Active Substance: ECONAZOLE NITRATE
     Indication: PRODUCT USED FOR UNKNOWN INDICATION
     Dosage: UNK
     Route: 065
  4. FLUCONAZOLE. [Concomitant]
     Active Substance: FLUCONAZOLE
     Indication: PRODUCT USED FOR UNKNOWN INDICATION
     Dosage: UNK
     Route: 065
  5. FUNGIZONE [Concomitant]
     Active Substance: AMPHOTERICIN B
     Indication: PRODUCT USED FOR UNKNOWN INDICATION
     Dosage: UNK
     Route: 002
  6. ACUPAN [Concomitant]
     Active Substance: NEFOPAM HYDROCHLORIDE
     Indication: PRODUCT USED FOR UNKNOWN INDICATION
     Dosage: UNK
     Route: 065
  7. NOVORAPID [Concomitant]
     Active Substance: INSULIN ASPART
     Indication: PRODUCT USED FOR UNKNOWN INDICATION
     Dosage: UNK
     Route: 065
  8. PARACETAMOL [Concomitant]
     Active Substance: ACETAMINOPHEN
     Indication: PRODUCT USED FOR UNKNOWN INDICATION
     Dosage: UNK
     Route: 065
  9. VANCOMYCINE MYLAN [Suspect]
     Active Substance: VANCOMYCIN
     Dosage: 500 MG, QD
     Route: 042
     Dates: start: 20200721, end: 20200721
  10. TIORFAN [Concomitant]
     Active Substance: RACECADOTRIL
     Indication: PRODUCT USED FOR UNKNOWN INDICATION
     Dosage: UNK
     Route: 065
  11. VANCOMYCINE MYLAN [Suspect]
     Active Substance: VANCOMYCIN
     Indication: STREPTOCOCCAL SEPSIS
     Dosage: 2 G, QD
     Route: 042
     Dates: start: 202006, end: 20200705
  12. VANCOMYCINE MYLAN [Suspect]
     Active Substance: VANCOMYCIN
     Dosage: 1.5 G, QD
     Route: 042
     Dates: start: 20200705, end: 20200721
  13. GENTAMICINE PANPHARMA [Suspect]
     Active Substance: GENTAMICIN
     Indication: STREPTOCOCCAL SEPSIS
     Dosage: 300 UG, QD
     Route: 042
     Dates: start: 20200626, end: 20200629
  14. LOVENOX [Concomitant]
     Active Substance: ENOXAPARIN SODIUM
     Indication: PRODUCT USED FOR UNKNOWN INDICATION
     Dosage: UNK
     Route: 065
  15. FUROSEMIDE. [Concomitant]
     Active Substance: FUROSEMIDE
     Indication: PRODUCT USED FOR UNKNOWN INDICATION
     Dosage: UNK
     Route: 065
  16. CETIRIZINE [Concomitant]
     Active Substance: CETIRIZINE HYDROCHLORIDE
     Indication: PRODUCT USED FOR UNKNOWN INDICATION
     Dosage: UNK
     Route: 065
  17. COLCHIMAX [Concomitant]
     Indication: PRODUCT USED FOR UNKNOWN INDICATION
     Route: 065

REACTIONS (1)
  - Drug reaction with eosinophilia and systemic symptoms [Recovering/Resolving]

NARRATIVE: CASE EVENT DATE: 20200629
